FAERS Safety Report 12197701 (Version 2)
Quarter: 2016Q2

REPORT INFORMATION
  Report Type: Spontaneous
  Country: CH (occurrence: CH)
  Receive Date: 20160322
  Receipt Date: 20160426
  Transmission Date: 20160815
  Serious: Yes (Hospitalization)
  Sender: FDA-Public Use
  Company Number: CH-ACTELION-A-CH2016-132903

PATIENT
  Age: 7 Month
  Sex: Male
  Weight: 4.7 kg

DRUGS (14)
  1. DIGOXIN. [Concomitant]
     Active Substance: DIGOXIN
     Dosage: 5 ?G, BID
     Route: 048
     Dates: start: 20160307
  2. VITAMIN D3 WILD [Concomitant]
     Dosage: 1 DROP, OD
     Route: 048
  3. LASIX [Concomitant]
     Active Substance: FUROSEMIDE
     Dosage: 2 MG, Q6HRS
     Route: 042
     Dates: start: 20160210
  4. INFANRIX HEXA [Concomitant]
     Active Substance: DIPHTHERIA AND TETANUS TOXOIDS AND ACELLULAR PERTUSSIS ADSORBED, INACTIVATED POLIOVIRUS AND HAEMOPHILUS B CONJUGATE AND HEPATITIS B VIRUS VACCINE
     Dosage: UNK
     Dates: start: 20160301
  5. ALDACTONE [Concomitant]
     Active Substance: SPIRONOLACTONE
     Dosage: 6 MG, BID
     Route: 048
  6. PREVENAR [Concomitant]
     Active Substance: PNEUMOCOCCAL 7-VALENT CONJUGATE VACCINE (DIPHTHERIA CRM197 PROTEIN)
     Dosage: UNK
     Dates: start: 20160301
  7. OPSUMIT [Suspect]
     Active Substance: MACITENTAN
     Indication: HYPOPLASTIC LEFT HEART SYNDROME
  8. SYNAGIS [Suspect]
     Active Substance: PALIVIZUMAB
     Indication: IMMUNISATION
     Dosage: 15 MG/KG, UNK
     Route: 030
     Dates: start: 20151113, end: 20160216
  9. ACETYLSALICYLIC ACID [Concomitant]
     Active Substance: ASPIRIN
     Dosage: 20 MG, OD
  10. OPSUMIT [Suspect]
     Active Substance: MACITENTAN
     Indication: PULMONARY ARTERIAL HYPERTENSION
     Dosage: 10 MG, QD
     Route: 048
     Dates: start: 20151221, end: 20160310
  11. CHLORAL HYDRATE [Concomitant]
     Active Substance: CHLORAL HYDRATE
     Dosage: 100 MG, UNK
  12. CAPTOPRIL. [Concomitant]
     Active Substance: CAPTOPRIL
     Dosage: 1.2 MG/ML, UNK
     Route: 048
     Dates: start: 20160210
  13. BECETAMOL [Concomitant]
     Dosage: 20 GTT, PRN
     Dates: end: 20160304
  14. HYDROCHLOROTHIAZIDE. [Concomitant]
     Active Substance: HYDROCHLOROTHIAZIDE
     Dosage: 6 MG, Q12HRS

REACTIONS (6)
  - Aspartate aminotransferase increased [Recovering/Resolving]
  - Transaminases increased [Recovering/Resolving]
  - Haematochezia [Unknown]
  - Hepatitis [Recovering/Resolving]
  - Milk allergy [Unknown]
  - Alanine aminotransferase increased [Recovering/Resolving]

NARRATIVE: CASE EVENT DATE: 20160301
